FAERS Safety Report 16753635 (Version 1)
Quarter: 2019Q3

REPORT INFORMATION
  Report Type: Report from Study
  Country: US (occurrence: US)
  Receive Date: 20190829
  Receipt Date: 20190829
  Transmission Date: 20191005
  Serious: Yes (Hospitalization)
  Sender: FDA-Public Use
  Company Number: US-TAKEDA-2018TUS030447

PATIENT
  Age: 59 Year
  Sex: Male

DRUGS (5)
  1. VEDOLIZUMAB [Suspect]
     Active Substance: VEDOLIZUMAB
     Indication: COLITIS ULCERATIVE
  2. MESALAMINE. [Concomitant]
     Active Substance: MESALAMINE
     Dosage: UNK UNK, BID
  3. PANTOPRAZOLE [Concomitant]
     Active Substance: PANTOPRAZOLE
     Dosage: 40 MG, BID
  4. VEDOLIZUMAB [Suspect]
     Active Substance: VEDOLIZUMAB
     Indication: CROHN^S DISEASE
     Dosage: 300 MG, UNK
     Route: 042
     Dates: start: 20181011
  5. ENTOCORT [Concomitant]
     Active Substance: BUDESONIDE
     Dosage: UNK UNK, QD

REACTIONS (7)
  - Atrial fibrillation [Not Recovered/Not Resolved]
  - Thrombosis [Unknown]
  - Flatulence [Unknown]
  - Therapeutic response decreased [Not Recovered/Not Resolved]
  - Fatigue [Unknown]
  - Lethargy [Unknown]
  - Abdominal pain [Unknown]

NARRATIVE: CASE EVENT DATE: 201905
